FAERS Safety Report 4761927-4 (Version None)
Quarter: 2005Q3

REPORT INFORMATION
  Report Type: 
  Country: None (occurrence: None)
  Receive Date: 20050831
  Receipt Date: 20050712
  Transmission Date: 20060218
  Serious: Yes (Other)
  Sender: FDA-Public Use
  Company Number: WAES 0507USA01575

PATIENT
  Age: 14 Month
  Sex: Male
  Weight: 13.1543 kg

DRUGS (3)
  1. SINGULAIR [Suspect]
     Indication: BRONCHOSPASM
     Dosage: 4 MG/DAILY/PO
     Route: 048
     Dates: start: 20050419, end: 20050616
  2. PULMICORT [Concomitant]
  3. ALBUTEROL [Concomitant]

REACTIONS (1)
  - OTITIS MEDIA [None]
